FAERS Safety Report 19163548 (Version 1)
Quarter: 2021Q2

REPORT INFORMATION
  Report Type: Spontaneous
  Country: US (occurrence: US)
  Receive Date: 20210421
  Receipt Date: 20210421
  Transmission Date: 20210717
  Serious: No
  Sender: FDA-Public Use
  Company Number: US-BIOVITRUM-2021US3828

PATIENT
  Sex: Male

DRUGS (1)
  1. SYNAGIS [Suspect]
     Active Substance: PALIVIZUMAB
     Indication: DOUBLE INLET LEFT VENTRICLE
     Route: 030
     Dates: start: 201912

REACTIONS (2)
  - Gastrointestinal disorder [Unknown]
  - Constipation [Unknown]
